FAERS Safety Report 9518179 (Version 1)
Quarter: 2013Q1

REPORT INFORMATION
  Report Type: Spontaneous
  Country: US (occurrence: None)
  Receive Date: 20130305
  Receipt Date: 20130305
  Transmission Date: 20140127
  Serious: Yes (Other)
  Sender: FDA-Public Use
  Company Number: 163-21880-12121218

PATIENT
  Age: 73 Year
  Sex: Female
  Weight: 68.04 kg

DRUGS (6)
  1. REVLIMID (LENALIDOMIDE) (25 MILLIGRAM, CAPSULES) [Suspect]
     Indication: PLASMA CELL MYELOMA
     Route: 048
     Dates: start: 20121112, end: 201211
  2. CALCIUM +D (OS-CAL) [Concomitant]
  3. CARVEDILOL (CARVEDILOL) [Concomitant]
  4. FISH OIL (FISH OIL) [Concomitant]
  5. LORAZEPAM (LORAZEPAM) [Concomitant]
  6. OXYCODONE (OXYCODONE) [Concomitant]

REACTIONS (1)
  - Red blood cell count decreased [None]
